FAERS Safety Report 24014251 (Version 2)
Quarter: 2024Q3

REPORT INFORMATION
  Report Type: Spontaneous
  Country: US (occurrence: US)
  Receive Date: 20240626
  Receipt Date: 20240711
  Transmission Date: 20241017
  Serious: Yes (Other)
  Sender: BLUEPRINT MEDICINES
  Company Number: US-Blueprint Medicines Corporation-3966

PATIENT
  Sex: Male

DRUGS (1)
  1. AYVAKIT [Suspect]
     Active Substance: AVAPRITINIB
     Indication: Systemic mastocytosis
     Route: 065
     Dates: start: 20230608

REACTIONS (6)
  - Transfusion [Unknown]
  - Deformity [Unknown]
  - Swelling face [Unknown]
  - Peripheral swelling [Unknown]
  - Swelling [Unknown]
  - Drug ineffective [Unknown]
